FAERS Safety Report 8363821-9 (Version None)
Quarter: 2012Q2

REPORT INFORMATION
  Report Type: 
  Country: None (occurrence: None)
  Receive Date: 20120516
  Receipt Date: 20120511
  Transmission Date: 20120825
  Serious: Yes (Death)
  Sender: FDA-Public Use
  Company Number: PE-ASTRAZENECA-2012SE30667

PATIENT
  Age: 94 Year
  Sex: Female

DRUGS (1)
  1. NEXIUM [Suspect]
     Indication: PORTAL HYPERTENSIVE GASTROPATHY
     Route: 048
     Dates: start: 20050202

REACTIONS (1)
  - MYOCARDIAL INFARCTION [None]
